FAERS Safety Report 8849634 (Version 1)
Quarter: 2012Q4

REPORT INFORMATION
  Report Type: Spontaneous
  Country: US (occurrence: None)
  Receive Date: 20121018
  Receipt Date: 20121018
  Transmission Date: 20130627
  Serious: Yes (Other)
  Sender: FDA-Public Use
  Company Number: None

PATIENT
  Age: 73 Year
  Sex: Female
  Weight: 81.65 kg

DRUGS (1)
  1. ESCITALOPRAM [Suspect]
     Indication: DEPRESSION
     Dosage: 1 tablet at bedtime po
     Route: 048
     Dates: start: 20121009, end: 20121013

REACTIONS (12)
  - Product substitution issue [None]
  - Sluggishness [None]
  - Apathy [None]
  - Fatigue [None]
  - Depressed mood [None]
  - Crying [None]
  - Disturbance in attention [None]
  - Depressed mood [None]
  - Anger [None]
  - Confusional state [None]
  - Extraocular muscle disorder [None]
  - Product quality issue [None]
